FAERS Safety Report 8522303-1 (Version None)
Quarter: 2012Q3

REPORT INFORMATION
  Report Type: 
  Country: None (occurrence: None)
  Receive Date: 20120719
  Receipt Date: 20120713
  Transmission Date: 20120928
  Serious: Yes (Life-Threatening, Hospitalization)
  Sender: FDA-Public Use
  Company Number: US-CELGENEUS-163-21880-09111317

PATIENT
  Sex: Male

DRUGS (7)
  1. LEXAPRO [Concomitant]
     Route: 065
     Dates: end: 20090101
  2. OMEPRAZOLE [Concomitant]
     Route: 065
     Dates: end: 20091125
  3. DOXYCYCLINE [Concomitant]
     Route: 065
     Dates: end: 20090101
  4. MEDROL [Concomitant]
     Route: 065
     Dates: end: 20090101
  5. DEXAMETHASONE [Concomitant]
     Route: 065
     Dates: end: 20091001
  6. ALLOPURINOL [Concomitant]
     Route: 065
     Dates: end: 20091005
  7. REVLIMID [Suspect]
     Indication: MULTIPLE MYELOMA
     Dosage: 25 MILLIGRAM
     Route: 048
     Dates: start: 20091007, end: 20100301

REACTIONS (5)
  - STAPHYLOCOCCAL INFECTION [None]
  - DYSPNOEA [None]
  - THIRST [None]
  - STEVENS-JOHNSON SYNDROME [None]
  - ASTHENIA [None]
